FAERS Safety Report 9256397 (Version 2)
Quarter: 2013Q3

REPORT INFORMATION
  Report Type: Spontaneous
  Country: FR (occurrence: FR)
  Receive Date: 20130425
  Receipt Date: 20130815
  Transmission Date: 20140515
  Serious: Yes (Hospitalization)
  Sender: FDA-Public Use
  Company Number: FR-ABBOTT-13P-056-1078407-00

PATIENT
  Age: 43 Year
  Sex: Male

DRUGS (17)
  1. NORVIR [Suspect]
     Indication: HIV INFECTION
     Route: 048
  2. REYATAZ [Interacting]
     Indication: HIV INFECTION
     Route: 048
  3. LAMICTAL [Interacting]
     Indication: EPILEPSY
     Route: 048
  4. LAMICTAL [Interacting]
     Dosage: 1.30 MG/L
  5. LAMICTAL [Interacting]
     Dosage: 0.6 MG/L
  6. LAMICTAL [Interacting]
     Dosage: 1.50 MG/L WITH THERAPEUTIC RANGE BETWEEN 2.5 TO 15 MG/L
  7. LAMICTAL [Interacting]
     Dosage: 1 IN MORNING AND 1 IN EVENING
     Dates: start: 20130614
  8. CLOPIXOL [Suspect]
     Indication: PRODUCT USED FOR UNKNOWN INDICATION
     Dosage: 10 DROPS THE MORNING AND 20 DROPS ON THE EVENING
     Route: 048
  9. CLOPIXOL [Suspect]
     Dosage: 8 DORPS IN THE MORNING AND 12 DROPS IN THE EVENING
  10. CLOPIXOL [Suspect]
     Dosage: 44 UG/L
  11. VALIUM [Concomitant]
     Indication: PRODUCT USED FOR UNKNOWN INDICATION
  12. HEPTAMYL [Concomitant]
     Indication: PRODUCT USED FOR UNKNOWN INDICATION
     Dosage: 2 IN THE MONING AND 1 AT MIDTIME AND 1 IN THE EVENING
  13. TRUVADA [Concomitant]
     Indication: PRODUCT USED FOR UNKNOWN INDICATION
  14. BACTRIM [Concomitant]
     Indication: PRODUCT USED FOR UNKNOWN INDICATION
  15. SPECIAFOLDINE [Concomitant]
     Indication: PRODUCT USED FOR UNKNOWN INDICATION
  16. TRANSIPEG [Concomitant]
     Indication: PRODUCT USED FOR UNKNOWN INDICATION
  17. LANSOYL [Concomitant]
     Indication: PRODUCT USED FOR UNKNOWN INDICATION

REACTIONS (12)
  - Epilepsy [Recovered/Resolved]
  - Coma [Recovered/Resolved]
  - Drug interaction [Unknown]
  - Hypothermia [Unknown]
  - Loss of consciousness [Recovered/Resolved]
  - Grand mal convulsion [Not Recovered/Not Resolved]
  - Miosis [Unknown]
  - Areflexia [Unknown]
  - Agitation [Unknown]
  - Overdose [Unknown]
  - Underdose [Unknown]
  - Treatment noncompliance [Unknown]
